FAERS Safety Report 12114091 (Version 3)
Quarter: 2016Q1

REPORT INFORMATION
  Report Type: Report from Study
  Country: DE (occurrence: DE)
  Receive Date: 20160225
  Receipt Date: 20160317
  Transmission Date: 20160526
  Serious: Yes (Hospitalization)
  Sender: FDA-Public Use
  Company Number: DE-HTU-2016DE011692

PATIENT
  Age: 50 Year
  Sex: Male
  Weight: 76.3 kg

DRUGS (8)
  1. OMEPRAZOLE. [Concomitant]
     Active Substance: OMEPRAZOLE
     Dosage: 20 MG, BID
     Dates: start: 20160120, end: 20160217
  2. 5-FU [Concomitant]
     Active Substance: FLUOROURACIL
     Indication: PANCREATIC CARCINOMA
     Dosage: 2800 MG/M2, UNK
     Dates: start: 20160210, end: 20160210
  3. IRINOTECAN [Concomitant]
     Active Substance: IRINOTECAN
     Indication: PANCREATIC CARCINOMA
     Dosage: 180 MG/M2, UNK
     Dates: start: 20160210, end: 20160210
  4. NOVALGIN [Concomitant]
     Active Substance: METAMIZOLE SODIUM
     Dosage: 40 GTT, QID
     Dates: start: 20160201
  5. AKYNZEO [Suspect]
     Active Substance: NETUPITANT\PALONOSETRON HYDROCHLORIDE
     Indication: PROPHYLAXIS OF NAUSEA AND VOMITING
     Dosage: 1 DF, SINGLE
     Route: 048
     Dates: start: 20160210, end: 20160210
  6. LEUCOVORIN. [Concomitant]
     Active Substance: LEUCOVORIN
     Indication: PANCREATIC CARCINOMA
     Dosage: 400 MG/M2, UNK
     Dates: start: 20160210, end: 20160210
  7. OXALIPLATIN. [Concomitant]
     Active Substance: OXALIPLATIN
     Indication: PANCREATIC CARCINOMA
     Dosage: 85 MG/M2, UNK
     Dates: start: 20160210, end: 20160210
  8. DEXAMETHASONE. [Concomitant]
     Active Substance: DEXAMETHASONE
     Dosage: 4 MG, QD
     Dates: start: 20160202, end: 20160217

REACTIONS (4)
  - Jaundice [Not Recovered/Not Resolved]
  - Hepatic failure [Not Recovered/Not Resolved]
  - Pancreatic carcinoma [Not Recovered/Not Resolved]
  - Disease progression [Not Recovered/Not Resolved]

NARRATIVE: CASE EVENT DATE: 20160217
